FAERS Safety Report 10232313 (Version 2)
Quarter: 2014Q2

REPORT INFORMATION
  Report Type: Spontaneous
  Country: US (occurrence: US)
  Receive Date: 20140612
  Receipt Date: 20140612
  Transmission Date: 20141212
  Serious: No
  Sender: FDA-Public Use
  Company Number: US-009507513-1405GBR010420

PATIENT
  Age: 55 Year
  Sex: Female
  Weight: 92.97 kg

DRUGS (3)
  1. AMITRIPTYLINE HYDROCHLORIDE [Suspect]
     Dosage: 25 MG DAILY
  2. CHANTIX [Suspect]
     Indication: TOBACCO USER
     Dosage: UNK
     Dates: start: 20140422
  3. FLUOXETINE [Concomitant]
     Indication: DEPRESSION
     Dosage: 20 MG DAILY

REACTIONS (5)
  - Feeling jittery [Unknown]
  - Tremor [Unknown]
  - Hypersomnia [Unknown]
  - Job dissatisfaction [Unknown]
  - Drug administration error [Unknown]
